FAERS Safety Report 15314959 (Version 1)
Quarter: 2018Q3

REPORT INFORMATION
  Report Type: Spontaneous
  Country: US (occurrence: US)
  Receive Date: 20180815
  Receipt Date: 20180815
  Transmission Date: 20181010
  Serious: Yes (Hospitalization)
  Sender: FDA-Public Use
  Company Number: None

PATIENT
  Sex: Female

DRUGS (3)
  1. ENBREL [Suspect]
     Active Substance: ETANERCEPT
     Indication: RHEUMATOID ARTHRITIS
     Route: 058
     Dates: start: 20150819
  2. HYDROXYCHLOR 200MG [Concomitant]
  3. FOLIC ACID 1MG [Concomitant]

REACTIONS (2)
  - Hip surgery [None]
  - Drug dose omission [None]
